FAERS Safety Report 7524682-0 (Version None)
Quarter: 2011Q2

REPORT INFORMATION
  Report Type: 
  Country: None (occurrence: None)
  Receive Date: 20110525
  Receipt Date: 20110517
  Transmission Date: 20111010
  Serious: Yes (Death, Hospitalization)
  Sender: FDA-Public Use
  Company Number: 1000018710

PATIENT
  Age: 76 Year
  Sex: Female
  Weight: 75 kg

DRUGS (3)
  1. ARICEPT [Suspect]
     Indication: DEMENTIA
     Dosage: 5 MG (5 MG, 1 IN 1 D)
     Dates: start: 20060101
  2. MEMANTINE HYDROCHLORIDE [Suspect]
     Indication: DEMENTIA
     Dosage: 10 MG (10 MG, 1 IN 1 D)
     Dates: start: 20091207
  3. SIFROL (PRAMIPEXOLE DIHYDROCHLORIDE) (PRAMIPEXOLE DIHYDROCHLORIDE) [Concomitant]

REACTIONS (17)
  - PNEUMONIA ASPIRATION [None]
  - ILEUS PARALYTIC [None]
  - RENAL FAILURE ACUTE [None]
  - MULTI-ORGAN FAILURE [None]
  - CARDIOVASCULAR DISORDER [None]
  - VULVOVAGINAL MYCOTIC INFECTION [None]
  - GASTRITIS EROSIVE [None]
  - PANCREATITIS ACUTE [None]
  - HAEMATEMESIS [None]
  - ACUTE ABDOMEN [None]
  - HYPOVOLAEMIC SHOCK [None]
  - BLOOD PRESSURE IMMEASURABLE [None]
  - RESPIRATORY FAILURE [None]
  - BRONCHIAL DISORDER [None]
  - BLOOD LACTIC ACID INCREASED [None]
  - TACHYCARDIA [None]
  - SEPTIC SHOCK [None]
